FAERS Safety Report 14967574 (Version 2)
Quarter: 2018Q4

REPORT INFORMATION
  Report Type: Report from Study
  Country: US (occurrence: US)
  Receive Date: 20180604
  Receipt Date: 20181011
  Transmission Date: 20190204
  Serious: Yes (Other)
  Sender: FDA-Public Use
  Company Number: PHEH2018US021193

PATIENT
  Sex: Female

DRUGS (3)
  1. ENTRESTO [Suspect]
     Active Substance: SACUBITRIL\VALSARTAN
     Indication: CARDIAC FAILURE CONGESTIVE
     Dosage: 50 MG (24 MG SACUBITRIL AND 26 MG VALSARTAN), BID
     Route: 048
  2. LASIX [Concomitant]
     Active Substance: FUROSEMIDE
     Indication: PRODUCT USED FOR UNKNOWN INDICATION
     Route: 065
  3. KLOR-CON [Concomitant]
     Active Substance: POTASSIUM CHLORIDE
     Indication: PRODUCT USED FOR UNKNOWN INDICATION
     Dosage: 20 MEQ, QD
     Route: 065

REACTIONS (7)
  - Hypersensitivity [Unknown]
  - Heart rate increased [Unknown]
  - Cardiac failure congestive [Unknown]
  - Cough [Not Recovered/Not Resolved]
  - Pulmonary hypertension [Unknown]
  - Dyspnoea [Unknown]
  - Dizziness [Unknown]
